FAERS Safety Report 12296159 (Version 2)
Quarter: 2021Q3

REPORT INFORMATION
  Report Type: Spontaneous
  Country: BR (occurrence: BR)
  Receive Date: 20160422
  Receipt Date: 20210707
  Transmission Date: 20211014
  Serious: Yes (Hospitalization, Other)
  Sender: FDA-Public Use
  Company Number: BR-ROCHE-1740921

PATIENT
  Sex: Female

DRUGS (7)
  1. RIVOTRIL [Suspect]
     Active Substance: CLONAZEPAM
     Indication: INSOMNIA
     Route: 065
     Dates: start: 1982
  2. RIVOTRIL [Suspect]
     Active Substance: CLONAZEPAM
     Dosage: AT NIGHT
     Route: 065
  3. PURAN [Concomitant]
     Active Substance: LEVOTHYROXINE SODIUM
     Dosage: AT BREAKFAST
  4. RIVOTRIL [Suspect]
     Active Substance: CLONAZEPAM
     Route: 065
  5. AMIODARONE [Concomitant]
     Active Substance: AMIODARONE
  6. RIVOTRIL [Suspect]
     Active Substance: CLONAZEPAM
     Route: 065
  7. RYTMONORM [Concomitant]
     Active Substance: PROPAFENONE

REACTIONS (15)
  - Dizziness [Recovering/Resolving]
  - Arrhythmia [Unknown]
  - Astigmatism [Unknown]
  - Maternal exposure timing unspecified [Unknown]
  - Fatigue [Unknown]
  - Hypermetropia [Unknown]
  - Fall [Unknown]
  - Off label use [Unknown]
  - Eyelid disorder [Unknown]
  - Mental fatigue [Unknown]
  - Cardiac septal defect [Unknown]
  - Syncope [Unknown]
  - Hypothyroidism [Unknown]
  - Malaise [Recovering/Resolving]
  - Asthenia [Recovering/Resolving]

NARRATIVE: CASE EVENT DATE: 2001
